FAERS Safety Report 14607264 (Version 1)
Quarter: 2018Q1

REPORT INFORMATION
  Report Type: Spontaneous
  Country: US (occurrence: US)
  Receive Date: 20180307
  Receipt Date: 20180307
  Transmission Date: 20180509
  Serious: No
  Sender: FDA-Public Use
  Company Number: US-PFIZER INC-2018087247

PATIENT
  Sex: Female

DRUGS (2)
  1. IBRANCE [Suspect]
     Active Substance: PALBOCICLIB
     Indication: BONE CANCER METASTATIC
     Dosage: UNK
     Dates: start: 201701
  2. FASLODEX [Suspect]
     Active Substance: FULVESTRANT
     Indication: BONE CANCER METASTATIC
     Dosage: UNK

REACTIONS (2)
  - Product use in unapproved indication [Unknown]
  - Neoplasm progression [Unknown]
